FAERS Safety Report 6901863-8 (Version None)
Quarter: 2010Q3

REPORT INFORMATION
  Report Type: 
  Country: None (occurrence: None)
  Receive Date: 20100803
  Receipt Date: 20080327
  Transmission Date: 20110219
  Serious: Yes (Disabling, Other)
  Sender: FDA-Public Use
  Company Number: US-PFIZER INC-2008028153

PATIENT
  Sex: Female
  Weight: 69.09 kg

DRUGS (6)
  1. LYRICA [Suspect]
     Indication: INTERVERTEBRAL DISC PROTRUSION
     Dates: start: 20070101
  2. ALL OTHER THERAPEUTIC PRODUCTS [Concomitant]
  3. GLUCOPHAGE [Concomitant]
  4. GLIPIZIDE [Concomitant]
  5. FLEXERIL [Concomitant]
  6. OXYCONTIN [Concomitant]

REACTIONS (4)
  - DIPLOPIA [None]
  - FEELING ABNORMAL [None]
  - GAIT DISTURBANCE [None]
  - INTENTIONAL DRUG MISUSE [None]
